FAERS Safety Report 10483869 (Version 1)
Quarter: 2014Q3

REPORT INFORMATION
  Report Type: Spontaneous
  Country: US (occurrence: None)
  Receive Date: 20140929
  Receipt Date: 20140929
  Transmission Date: 20150326
  Serious: Yes (Hospitalization)
  Sender: FDA-Public Use
  Company Number: None

PATIENT
  Age: 70 Year
  Sex: Male
  Weight: 64.2 kg

DRUGS (2)
  1. ABIRATERONE ACETATE [Suspect]
     Active Substance: ABIRATERONE ACETATE
     Dates: end: 20140917
  2. PREDNISONE. [Suspect]
     Active Substance: PREDNISONE
     Dates: end: 20140917

REACTIONS (3)
  - Pain [None]
  - Chest pain [None]
  - Metastases to bone [None]

NARRATIVE: CASE EVENT DATE: 20140918
